FAERS Safety Report 12191052 (Version 1)
Quarter: 2016Q1

REPORT INFORMATION
  Report Type: Other
  Country: CA (occurrence: CA)
  Receive Date: 20160318
  Receipt Date: 20160318
  Transmission Date: 20160526
  Serious: Yes (Hospitalization)
  Sender: FDA-Public Use
  Company Number: CA-CONCORDIA PHARMACEUTICALS INC.-CO-PL-CA-2016-096

PATIENT
  Age: 29 Year
  Sex: Male

DRUGS (3)
  1. METHOTREXATE [Concomitant]
     Active Substance: METHOTREXATE
     Indication: RHEUMATOID ARTHRITIS
  2. SULFASALAZINE. [Concomitant]
     Active Substance: SULFASALAZINE
     Indication: RHEUMATOID ARTHRITIS
  3. HYDROXYCHLOROQUINE SULFATE. [Suspect]
     Active Substance: HYDROXYCHLOROQUINE SULFATE
     Indication: RHEUMATOID ARTHRITIS

REACTIONS (13)
  - Left ventricular hypertrophy [Recovering/Resolving]
  - Ventricular hypokinesia [Recovering/Resolving]
  - Ventricular hypertrophy [Recovering/Resolving]
  - Dyspnoea exertional [Recovering/Resolving]
  - Dilatation ventricular [Recovering/Resolving]
  - Right atrial dilatation [Recovering/Resolving]
  - Left atrial dilatation [Recovering/Resolving]
  - Cardiac failure [Recovering/Resolving]
  - Troponin increased [Recovering/Resolving]
  - Myocardial oedema [Recovering/Resolving]
  - Cardiomyopathy [Recovering/Resolving]
  - Ejection fraction decreased [Recovering/Resolving]
  - Cardiomegaly [Recovering/Resolving]
